FAERS Safety Report 5683324-X (Version None)
Quarter: 2008Q1

REPORT INFORMATION
  Report Type: 
  Country: None (occurrence: None)
  Receive Date: 20080327
  Receipt Date: 20080318
  Transmission Date: 20080703
  Serious: Yes (Other)
  Sender: FDA-Public Use
  Company Number: CH-ABBOTT-07P-151-0430114-00

PATIENT
  Age: 50 Year
  Sex: Female

DRUGS (1)
  1. HUMIRA [Suspect]
     Indication: RHEUMATOID ARTHRITIS
     Dates: start: 20041001, end: 20070401

REACTIONS (4)
  - HYPERSENSITIVITY [None]
  - PHOTOSENSITIVITY REACTION [None]
  - RASH [None]
  - SKIN INFLAMMATION [None]
